FAERS Safety Report 7486591 (Version 3)
Quarter: 2016Q1

REPORT INFORMATION
  Report Type: Spontaneous
  Country: US (occurrence: US)
  Receive Date: 20100719
  Receipt Date: 20160115
  Transmission Date: 20160526
  Serious: Yes (Hospitalization, Other)
  Sender: FDA-Public Use
  Company Number: US-TEVA-240969USA

PATIENT
  Sex: Female
  Weight: 58.11 kg

DRUGS (2)
  1. COPAXONE [Suspect]
     Active Substance: GLATIRAMER ACETATE
     Indication: MULTIPLE SCLEROSIS
     Dosage: 20 MILLIGRAM DAILY;
     Route: 058
     Dates: start: 200911
  2. COPAXONE [Suspect]
     Active Substance: GLATIRAMER ACETATE
     Route: 058
     Dates: start: 201412

REACTIONS (7)
  - Tooth fracture [Unknown]
  - Dental caries [Unknown]
  - Toothache [Unknown]
  - Loss of consciousness [Unknown]
  - Tooth erosion [Unknown]
  - Memory impairment [Unknown]
  - Tooth loss [Unknown]
